FAERS Safety Report 8394372-3 (Version None)
Quarter: 2012Q2

REPORT INFORMATION
  Report Type: 
  Country: None (occurrence: None)
  Receive Date: 20120525
  Receipt Date: 20120525
  Transmission Date: 20120825
  Serious: Yes (Death, Hospitalization)
  Sender: FDA-Public Use
  Company Number: None

PATIENT
  Age: 31 Year
  Sex: Male
  Weight: 108.8633 kg

DRUGS (3)
  1. HUMIRA [Suspect]
  2. HUMIRA [Suspect]
     Indication: PSORIASIS
     Dosage: 40 MG. EVERY OTHER WEEK SQ
     Route: 058
     Dates: start: 20110706, end: 20110922
  3. HUMIRA [Suspect]
     Indication: ARTHRITIS
     Dosage: 40 MG. EVERY OTHER WEEK SQ
     Route: 058
     Dates: start: 20110706, end: 20110922

REACTIONS (20)
  - PNEUMONIA LEGIONELLA [None]
  - SEPTIC SHOCK [None]
  - HAEMOPTYSIS [None]
  - BONE PAIN [None]
  - ARTHRITIS [None]
  - MALAISE [None]
  - ASTHENIA [None]
  - DYSPNOEA [None]
  - VOMITING [None]
  - DIALYSIS [None]
  - ORGAN FAILURE [None]
  - BRONCHITIS [None]
  - PLATELET COUNT DECREASED [None]
  - OEDEMA PERIPHERAL [None]
  - ACUTE LYMPHOCYTIC LEUKAEMIA [None]
  - GENERAL PHYSICAL HEALTH DETERIORATION [None]
  - HEPATIC STEATOSIS [None]
  - ABDOMINAL DISTENSION [None]
  - DISSEMINATED INTRAVASCULAR COAGULATION [None]
  - FATIGUE [None]
